FAERS Safety Report 16442186 (Version 1)
Quarter: 2019Q2

REPORT INFORMATION
  Report Type: Report from Study
  Country: None (occurrence: US)
  Receive Date: 20190617
  Receipt Date: 20190617
  Transmission Date: 20190711
  Serious: No
  Sender: FDA-Public Use
  Company Number: US-US WORLDMEDS, LLC-USW201901-000201

PATIENT
  Age: 71 Year
  Sex: Male
  Weight: 155.12 kg

DRUGS (15)
  1. CARBIDOPA LEVODOPA [Concomitant]
     Active Substance: CARBIDOPA\LEVODOPA
     Dosage: 25-100 MG 1.5 TABS AM, 1 TAB NOON, 1.5 TABS 1600, 1 TAB 2000
  2. AMANTADINE. [Concomitant]
     Active Substance: AMANTADINE HYDROCHLORIDE
  3. PROBIOTIC [Concomitant]
     Active Substance: PROBIOTICS NOS
  4. TROSPIUM CHLORIDE. [Concomitant]
     Active Substance: TROSPIUM CHLORIDE
  5. FLUCONAZOLE. [Concomitant]
     Active Substance: FLUCONAZOLE
  6. APOKYN [Suspect]
     Active Substance: APOMORPHINE HYDROCHLORIDE
     Route: 058
     Dates: start: 201812
  7. APOKYN [Suspect]
     Active Substance: APOMORPHINE HYDROCHLORIDE
     Indication: PARKINSON^S DISEASE
     Route: 058
     Dates: start: 20190116
  8. MULTIVIT [Concomitant]
     Active Substance: VITAMINS
  9. METOPROLOL. [Concomitant]
     Active Substance: METOPROLOL
  10. FLOMAX [Concomitant]
     Active Substance: TAMSULOSIN HYDROCHLORIDE
  11. PANTOPRAZOLE [Concomitant]
     Active Substance: PANTOPRAZOLE
  12. VIT B 12 [Concomitant]
     Active Substance: CYANOCOBALAMIN
  13. FINASTERIDE. [Concomitant]
     Active Substance: FINASTERIDE
  14. CLONAZEPAM. [Concomitant]
     Active Substance: CLONAZEPAM
  15. RASAGILINE. [Concomitant]
     Active Substance: RASAGILINE

REACTIONS (8)
  - Nausea [Unknown]
  - Drug ineffective [Unknown]
  - Dyskinesia [Unknown]
  - Confusional state [Recovered/Resolved]
  - On and off phenomenon [Unknown]
  - Freezing phenomenon [Recovered/Resolved]
  - Micturition urgency [Recovered/Resolved]
  - Incontinence [Unknown]

NARRATIVE: CASE EVENT DATE: 20190124
